FAERS Safety Report 8023614-9 (Version None)
Quarter: 2012Q1

REPORT INFORMATION
  Report Type: 
  Country: None (occurrence: None)
  Receive Date: 20120104
  Receipt Date: 20120104
  Transmission Date: 20120608
  Serious: Yes (Hospitalization)
  Sender: FDA-Public Use
  Company Number: None

PATIENT
  Age: 80 Year
  Sex: Male
  Weight: 90.6 kg

DRUGS (2)
  1. GEMFIBROZIL [Suspect]
     Dosage: 600 MG BID PO
     Route: 048
     Dates: start: 20100426, end: 20111206
  2. SIMVASTATIN [Suspect]
     Dosage: 10 MG HS PO
     Route: 048
     Dates: start: 20100611, end: 20111130

REACTIONS (9)
  - GAIT DISTURBANCE [None]
  - RHABDOMYOLYSIS [None]
  - HYPOTENSION [None]
  - RESPIRATORY RATE DECREASED [None]
  - RENAL FAILURE ACUTE [None]
  - FALL [None]
  - OXYGEN SATURATION DECREASED [None]
  - CONFUSIONAL STATE [None]
  - MIOSIS [None]
